FAERS Safety Report 12264690 (Version 1)
Quarter: 2016Q2

REPORT INFORMATION
  Report Type: Spontaneous
  Country: GB (occurrence: GB)
  Receive Date: 20160413
  Receipt Date: 20160413
  Transmission Date: 20160815
  Serious: Yes (Death)
  Sender: FDA-Public Use
  Company Number: GB-PFIZER INC-2016204437

PATIENT
  Sex: Female

DRUGS (1)
  1. PHENYTOIN. [Suspect]
     Active Substance: PHENYTOIN
     Dosage: LOADING DOSE
     Route: 042
     Dates: start: 20160120

REACTIONS (2)
  - Cardiac arrest [Fatal]
  - Contraindicated drug administered [Fatal]

NARRATIVE: CASE EVENT DATE: 20160120
